FAERS Safety Report 8980040 (Version 2)
Quarter: 2013Q1

REPORT INFORMATION
  Report Type: Report from Study
  Country: AR (occurrence: AR)
  Receive Date: 20121221
  Receipt Date: 20130201
  Transmission Date: 20140127
  Serious: Yes (Other)
  Sender: FDA-Public Use
  Company Number: AR-ABBOTT-12P-007-1004758-00

PATIENT
  Age: 63 Year
  Sex: Female

DRUGS (4)
  1. HUMIRA [Suspect]
     Indication: RHEUMATOID ARTHRITIS
     Route: 058
     Dates: start: 20071126, end: 20121011
  2. HUMIRA [Suspect]
  3. HUMIRA [Suspect]
     Dates: end: 20130103
  4. CIPROFLOXACIN [Concomitant]
     Indication: PRODUCT USED FOR UNKNOWN INDICATION

REACTIONS (4)
  - Bunion [Recovering/Resolving]
  - Postoperative wound infection [Recovering/Resolving]
  - Wound complication [Recovering/Resolving]
  - Wound complication [Recovering/Resolving]
